FAERS Safety Report 6277940-4 (Version None)
Quarter: 2009Q3

REPORT INFORMATION
  Report Type: 
  Country: None (occurrence: None)
  Receive Date: 20090722
  Receipt Date: 20070619
  Transmission Date: 20100115
  Serious: Yes (Other)
  Sender: FDA-Public Use
  Company Number: US-ASTRAZENECA-2006UW25156

PATIENT
  Age: 45 Year
  Sex: Male
  Weight: 95.3 kg

DRUGS (13)
  1. SEROQUEL [Suspect]
     Indication: DEPRESSION
     Dosage: 25 MG - 100 MG DAILY
     Route: 048
     Dates: start: 20010115
  2. SEROQUEL [Suspect]
     Route: 048
     Dates: start: 20011001, end: 20030101
  3. RISPERDAL [Concomitant]
     Dates: start: 20010101
  4. THORAZINE [Concomitant]
     Dates: start: 20020101
  5. ZYPREXA [Concomitant]
  6. WEIGHT CONTROL DRUGS [Concomitant]
     Dates: start: 20010101, end: 20040101
  7. NEURONTIN [Concomitant]
     Route: 048
     Dates: start: 20031013
  8. BENADRYL [Concomitant]
     Dosage: 50 MG - 100 MG AT NIGHT
     Route: 048
     Dates: start: 20060331
  9. GEODON [Concomitant]
     Dosage: 20 MG - 120 MG DAILY
     Route: 048
     Dates: start: 20060331
  10. CHLORPROMAZINE [Concomitant]
     Route: 048
     Dates: start: 20050118
  11. ELAVIL [Concomitant]
     Dosage: 25 MG - 100 MG DAILY
     Route: 048
     Dates: start: 20031013
  12. CLONIDINE [Concomitant]
     Indication: HYPERTENSION
     Dates: start: 20020521
  13. NIFEDIPINE [Concomitant]
     Indication: HYPERTENSION
     Dates: start: 20020521

REACTIONS (3)
  - DIABETES MELLITUS [None]
  - DIABETIC NEUROPATHY [None]
  - TYPE 2 DIABETES MELLITUS [None]
